FAERS Safety Report 5226725-6 (Version None)
Quarter: 2007Q1

REPORT INFORMATION
  Report Type: 
  Country: None (occurrence: None)
  Receive Date: 20070129
  Receipt Date: 20070118
  Transmission Date: 20070707
  Serious: Yes (Other)
  Sender: FDA-Public Use
  Company Number: SPVI-200602100

PATIENT
  Age: 5 Year
  Sex: Male
  Weight: 22.7 kg

DRUGS (4)
  1. DAYTRANA [Suspect]
     Indication: ATTENTION DEFICIT/HYPERACTIVITY DISORDER
     Dosage: 30 MG, TRANSDERMAL
     Route: 062
     Dates: start: 20060901, end: 20061207
  2. STRATTERA [Concomitant]
  3. AUGMENTIN '125' [Concomitant]
  4. METHYLIN (METHYLPHENIDATE HYDROCHLORIDE) [Concomitant]

REACTIONS (6)
  - APPLICATION SITE DERMATITIS [None]
  - APPLICATION SITE ERYTHEMA [None]
  - APPLICATION SITE RASH [None]
  - DERMATITIS CONTACT [None]
  - DRUG HYPERSENSITIVITY [None]
  - PHARMACEUTICAL PRODUCT COMPLAINT [None]
